FAERS Safety Report 8877234 (Version 1)
Quarter: 2012Q4

REPORT INFORMATION
  Report Type: 
  Country: US (occurrence: US)
  Receive Date: 20121023
  Receipt Date: 20121023
  Transmission Date: 20130627
  Serious: No
  Sender: FDA-Public Use
  Company Number: US-AMGEN-USASP2012058477

PATIENT
  Sex: Male

DRUGS (4)
  1. ENBREL [Suspect]
     Indication: PRODUCT USED FOR UNKNOWN INDICATION
     Dosage: 50 mg, qwk
     Route: 058
  2. MECLIZINE                          /00072801/ [Concomitant]
     Dosage: 12.5 mg, UNK
  3. VICODIN ES [Concomitant]
     Dosage: 7.5-750
  4. ONE A DAY MENS [Concomitant]
     Dosage: UNK

REACTIONS (1)
  - Vertigo [Unknown]
